FAERS Safety Report 8819098 (Version 1)
Quarter: 2012Q4

REPORT INFORMATION
  Report Type: 
  Country: FR (occurrence: FR)
  Receive Date: 20121001
  Receipt Date: 20121001
  Transmission Date: 20130627
  Serious: Yes (Hospitalization)
  Sender: FDA-Public Use
  Company Number: FR-JNJFOC-20120911170

PATIENT
  Age: 48 Year
  Sex: Male

DRUGS (7)
  1. REMICADE [Suspect]
     Indication: PRODUCT USED FOR UNKNOWN INDICATION
     Route: 042
     Dates: start: 20120418, end: 20120418
  2. REMICADE [Suspect]
     Indication: PRODUCT USED FOR UNKNOWN INDICATION
     Route: 042
     Dates: start: 20110119
  3. BIPERIDYS [Concomitant]
     Route: 065
  4. IMODIUM [Concomitant]
     Route: 065
  5. INEXIUM [Concomitant]
     Route: 065
  6. KLIPAL [Concomitant]
     Route: 065
  7. DOLIPRANE [Concomitant]
     Route: 065

REACTIONS (6)
  - Infusion related reaction [Recovered/Resolved]
  - Hypoxia [Recovered/Resolved]
  - Tremor [Recovered/Resolved]
  - Hypotension [Recovered/Resolved]
  - Tachycardia [Recovered/Resolved]
  - Dyspnoea [Recovered/Resolved]
